FAERS Safety Report 8236634-6 (Version None)
Quarter: 2012Q1

REPORT INFORMATION
  Report Type: 
  Country: None (occurrence: None)
  Receive Date: 20120326
  Receipt Date: 20120326
  Transmission Date: 20120608
  Serious: Yes (Hospitalization)
  Sender: FDA-Public Use
  Company Number: None

PATIENT
  Age: 65 Year
  Sex: Male
  Weight: 68.0396 kg

DRUGS (2)
  1. CELEBREX [Suspect]
     Indication: OEDEMA PERIPHERAL
     Dosage: 2 PILLS 2X
     Dates: start: 20120220, end: 20120221
  2. CELEBREX [Suspect]
     Indication: INFECTION
     Dosage: 2 PILLS 2X
     Dates: start: 20120220, end: 20120221

REACTIONS (8)
  - INFECTION [None]
  - VOMITING [None]
  - SYNCOPE [None]
  - NAUSEA [None]
  - DIZZINESS [None]
  - OEDEMA PERIPHERAL [None]
  - INSOMNIA [None]
  - SKIN DISCOLOURATION [None]
